FAERS Safety Report 7717051-1 (Version None)
Quarter: 2011Q3

REPORT INFORMATION
  Report Type: 
  Country: None (occurrence: None)
  Receive Date: 20110830
  Receipt Date: 20110822
  Transmission Date: 20111222
  Serious: Yes (Hospitalization)
  Sender: FDA-Public Use
  Company Number: BR-BRISTOL-MYERS SQUIBB COMPANY-15988157

PATIENT
  Age: 54 Year
  Sex: Female
  Weight: 79 kg

DRUGS (3)
  1. ERBITUX [Suspect]
     Indication: ANAL CANCER
     Dosage: RECENT INFUSION DATE:08AUG11(13DAYS).
     Route: 042
     Dates: start: 20110726, end: 20110812
  2. ONDANSETRON [Concomitant]
     Indication: NAUSEA
     Route: 048
     Dates: start: 20110805, end: 20110814
  3. RANITIDINE [Concomitant]
     Route: 048
     Dates: start: 20110805, end: 20110812

REACTIONS (1)
  - PANCREATITIS [None]
